FAERS Safety Report 9107111 (Version 1)
Quarter: 2013Q1

REPORT INFORMATION
  Report Type: Spontaneous
  Country: US (occurrence: US)
  Receive Date: 20130221
  Receipt Date: 20130221
  Transmission Date: 20140127
  Serious: No
  Sender: FDA-Public Use
  Company Number: US-009507513-1302USA009477

PATIENT
  Sex: Male

DRUGS (3)
  1. PEGINTRON [Suspect]
     Indication: CHRONIC HEPATITIS C
     Dosage: 150 MICROGRAM, QW
     Route: 058
     Dates: start: 20121112
  2. VICTRELIS [Suspect]
     Indication: CHRONIC HEPATITIS C
  3. RIBAPAK [Suspect]
     Indication: CHRONIC HEPATITIS C

REACTIONS (2)
  - Hypersomnia [Not Recovered/Not Resolved]
  - Irritability [Not Recovered/Not Resolved]
